FAERS Safety Report 9108869 (Version 1)
Quarter: 2013Q1

REPORT INFORMATION
  Report Type: Spontaneous
  Country: CA (occurrence: CA)
  Receive Date: 20130222
  Receipt Date: 20130222
  Transmission Date: 20140127
  Serious: Yes (Other)
  Sender: FDA-Public Use
  Company Number: CA-AMGEN-CANSP2013010446

PATIENT
  Age: 75 Year
  Sex: Female
  Weight: 51.82 kg

DRUGS (1)
  1. PROLIA [Suspect]
     Indication: OSTEOPOROSIS
     Dosage: 60 MG, UNK
     Dates: start: 20120206

REACTIONS (13)
  - Blood sodium decreased [Unknown]
  - Weight decreased [Unknown]
  - Burning sensation [Unknown]
  - Decreased appetite [Unknown]
  - Nausea [Unknown]
  - Pyrexia [Unknown]
  - Feeling hot [Unknown]
  - Device deployment issue [Unknown]
  - Feeling abnormal [Unknown]
  - Constipation [Unknown]
  - Musculoskeletal pain [Unknown]
  - Back pain [Unknown]
  - Pain in extremity [Unknown]
